FAERS Safety Report 16393277 (Version 2)
Quarter: 2019Q2

REPORT INFORMATION
  Report Type: Spontaneous
  Country: IN (occurrence: IN)
  Receive Date: 20190605
  Receipt Date: 20190605
  Transmission Date: 20190711
  Serious: Yes (Other)
  Sender: FDA-Public Use
  Company Number: PHHY2019IN122850

PATIENT
  Age: 40 Year
  Sex: Male

DRUGS (2)
  1. PREDNISOLONE. [Suspect]
     Active Substance: PREDNISOLONE
     Indication: TYPE 2 LEPRA REACTION
     Dosage: 60 MG, UNK
     Route: 065
  2. THALIDOMIDE [Suspect]
     Active Substance: THALIDOMIDE
     Indication: TYPE 2 LEPRA REACTION
     Dosage: 300 MG, IN THREE DIVDED DOSES
     Route: 065

REACTIONS (4)
  - Necrosis [Unknown]
  - Neuritis [Unknown]
  - Pyrexia [Unknown]
  - Product use in unapproved indication [Unknown]
